FAERS Safety Report 25814299 (Version 2)
Quarter: 2025Q4

REPORT INFORMATION
  Report Type: Spontaneous
  Country: US (occurrence: US)
  Receive Date: 20250917
  Receipt Date: 20251020
  Transmission Date: 20260117
  Serious: No
  Sender: PFIZER
  Company Number: US-PFIZER INC-202500180304

PATIENT
  Sex: Male

DRUGS (2)
  1. COMIRNATY (BNT162B2 OMICRON (LP.8.1)) [Interacting]
     Active Substance: BNT162B2 OMICRON (LP.8.1)
     Indication: COVID-19 immunisation
     Dosage: DOSE 1, SINGLE
  2. LEVOFLOXACIN [Interacting]
     Active Substance: LEVOFLOXACIN
     Indication: Infection
     Dosage: UNK

REACTIONS (1)
  - Drug interaction [Unknown]
